FAERS Safety Report 13032585 (Version 5)
Quarter: 2017Q2

REPORT INFORMATION
  Report Type: Spontaneous
  Country: US (occurrence: US)
  Receive Date: 20161215
  Receipt Date: 20170616
  Transmission Date: 20170830
  Serious: No
  Sender: FDA-Public Use
  Company Number: US-PFIZER INC-2016579333

PATIENT
  Age: 46 Year
  Sex: Female
  Weight: 91 kg

DRUGS (4)
  1. SOMAVERT [Suspect]
     Active Substance: PEGVISOMANT
     Dosage: 30 MG, DAILY
     Route: 058
     Dates: start: 201612
  2. SOMAVERT [Suspect]
     Active Substance: PEGVISOMANT
     Indication: ACROMEGALY
     Dosage: 20 MG, DAILY
     Route: 058
     Dates: start: 2000
  3. SOMAVERT [Suspect]
     Active Substance: PEGVISOMANT
     Dosage: 30 MG, DAILY 20MG INJECTION OF THE OLD STYLE KIT AND 10MG INJECTION OF THE NEW STYLE KIT
     Route: 058
  4. SOMAVERT [Suspect]
     Active Substance: PEGVISOMANT
     Indication: PITUITARY TUMOUR REMOVAL
     Dosage: 40 MG, 1X/DAY; (7 DAYS /WK)
     Dates: start: 201108

REACTIONS (3)
  - Insulin-like growth factor increased [Unknown]
  - Poor quality drug administered [Not Recovered/Not Resolved]
  - Product solubility abnormal [Not Recovered/Not Resolved]

NARRATIVE: CASE EVENT DATE: 201610
